FAERS Safety Report 4329906-9 (Version None)
Quarter: 2004Q1

REPORT INFORMATION
  Report Type: 
  Country: None (occurrence: None)
  Receive Date: 20040329
  Receipt Date: 20040218
  Transmission Date: 20041129
  Serious: No
  Sender: FDA-Public Use
  Company Number: 03P-163-0240174-00

PATIENT
  Age: 62 Year
  Sex: Female
  Weight: 113.3993 kg

DRUGS (7)
  1. HUMIRA [Suspect]
     Indication: RHEUMATOID ARTHRITIS
     Dosage: 40 MG, 1 IN 2 WK, SUBCUTANEOUS
     Route: 058
     Dates: start: 20031002
  2. METHOTREXATE [Concomitant]
  3. PREDNISONE [Concomitant]
  4. HYDROXYCHLOROQUINE PHOSPHATE [Concomitant]
  5. LEVOTHYROXINE SODIUM [Concomitant]
  6. TRAZODONE HCL [Concomitant]
  7. DYAZIDE [Concomitant]

REACTIONS (3)
  - CHROMATURIA [None]
  - CONDITION AGGRAVATED [None]
  - MUSCULOSKELETAL STIFFNESS [None]
